FAERS Safety Report 4608409-8 (Version None)
Quarter: 2005Q1

REPORT INFORMATION
  Report Type: 
  Country: None (occurrence: None)
  Receive Date: 20050311
  Receipt Date: 20050311
  Transmission Date: 20050727
  Serious: Yes (Hospitalization, Other)
  Sender: FDA-Public Use
  Company Number: None

PATIENT
  Age: 65 Year
  Sex: Female
  Weight: 68 kg

DRUGS (11)
  1. TEQUIN [Suspect]
     Indication: BRONCHITIS
     Dosage: 400 MG IV QD
     Route: 042
     Dates: start: 20041014, end: 20041022
  2. SOLU-MEDROL [Suspect]
     Indication: ASTHMA
     Dosage: 60 MG IV Q 6 HRS
     Route: 042
     Dates: start: 20041014, end: 20041026
  3. PEPCID [Concomitant]
  4. PROVENTIL [Concomitant]
  5. AMINOPHYLLIN [Concomitant]
  6. NEURONTIN [Concomitant]
  7. PLAVIX [Concomitant]
  8. ZOCOR [Concomitant]
  9. NORVASC [Concomitant]
  10. HUMULIN 70/30 [Concomitant]
  11. CAPOTEN [Concomitant]

REACTIONS (1)
  - HYPERGLYCAEMIA [None]
